FAERS Safety Report 10050850 (Version 1)
Quarter: 2014Q2

REPORT INFORMATION
  Report Type: Spontaneous
  Country: US (occurrence: US)
  Receive Date: 20140401
  Receipt Date: 20140401
  Transmission Date: 20141212
  Serious: No
  Sender: FDA-Public Use
  Company Number: US-ASTRAZENECA-2014SE12402

PATIENT
  Age: 62 Year
  Sex: Female
  Weight: 41.3 kg

DRUGS (9)
  1. NEXIUM [Suspect]
     Indication: HIATUS HERNIA
     Route: 048
     Dates: start: 2003
  2. PRILOSEC [Suspect]
     Indication: HIATUS HERNIA
     Route: 048
     Dates: start: 1992, end: 2002
  3. PRILOSEC OTC [Suspect]
     Indication: HIATUS HERNIA
     Route: 048
     Dates: start: 2003, end: 2003
  4. SYNTHROID [Concomitant]
     Indication: HYPOTHYROIDISM
     Route: 048
     Dates: start: 2006
  5. ALLEVE [Concomitant]
     Indication: NECK PAIN
     Dosage: 2X220MG TABS HS
     Route: 048
     Dates: start: 2012
  6. ASPIRIN [Concomitant]
     Route: 048
  7. NORVASC [Concomitant]
     Indication: BLOOD PRESSURE ABNORMAL
     Route: 048
     Dates: start: 201312
  8. ALLBUTEROL [Concomitant]
     Indication: BRONCHITIS
     Dosage: 2 MG
     Route: 048
     Dates: start: 201309
  9. CORTISONE INJECTION [Concomitant]
     Indication: NECK PAIN
     Dosage: EVERY 4-6 MONTHS
     Route: 050
     Dates: start: 2012

REACTIONS (4)
  - Blood glucose increased [Unknown]
  - Intentional product misuse [Unknown]
  - Off label use [Unknown]
  - Drug ineffective [Unknown]
